FAERS Safety Report 13154216 (Version 1)
Quarter: 2017Q1

REPORT INFORMATION
  Report Type: Spontaneous
  Country: US (occurrence: US)
  Receive Date: 20170125
  Receipt Date: 20170125
  Transmission Date: 20170428
  Serious: Yes (Death)
  Sender: FDA-Public Use
  Company Number: None

PATIENT
  Age: 73 Year
  Sex: Female

DRUGS (1)
  1. SILDENAFIL 20MG TABLETS [Suspect]
     Active Substance: SILDENAFIL
     Indication: PULMONARY ARTERIAL HYPERTENSION
     Dosage: 20MG 3 TIMES DAILY ORAL
     Route: 048
     Dates: start: 20160718

REACTIONS (1)
  - Death [None]

NARRATIVE: CASE EVENT DATE: 20170125
